FAERS Safety Report 25776517 (Version 1)
Quarter: 2025Q3

REPORT INFORMATION
  Report Type: Spontaneous
  Country: US (occurrence: US)
  Receive Date: 20250909
  Receipt Date: 20250909
  Transmission Date: 20251021
  Serious: No
  Sender: DOMPE FARMACEUTICI
  Company Number: US-FARMAPROD-202409-3129

PATIENT
  Sex: Male

DRUGS (26)
  1. OXERVATE [Suspect]
     Active Substance: CENEGERMIN-BKBJ
     Indication: Neurotrophic keratopathy
     Route: 047
     Dates: start: 20240828
  2. METOPROLOL SUCCINATE [Concomitant]
     Active Substance: METOPROLOL SUCCINATE
  3. DESITIN DAILY DEFENSE [Concomitant]
  4. AMLODIPINE BESYLATE [Concomitant]
     Active Substance: AMLODIPINE BESYLATE
  5. MELATONIN [Concomitant]
     Active Substance: MELATONIN
  6. VITAMIN D3 [Concomitant]
     Active Substance: CHOLECALCIFEROL
  7. SILVADENE [Concomitant]
     Active Substance: SILVER SULFADIAZINE
  8. POTASSIUM CHLORIDE [Concomitant]
     Active Substance: POTASSIUM CHLORIDE
  9. REPATHA [Concomitant]
     Active Substance: EVOLOCUMAB
  10. PREDNISOLONE-BROMFENAC [Concomitant]
  11. ONDANSETRON HYDROCHLORIDE [Concomitant]
     Active Substance: ONDANSETRON HYDROCHLORIDE
  12. FISH OIL [Concomitant]
     Active Substance: FISH OIL
  13. NITROGLYCERIN [Concomitant]
     Active Substance: NITROGLYCERIN
  14. METFORMIN HYDROCHLORIDE [Concomitant]
     Active Substance: METFORMIN HYDROCHLORIDE
  15. LEVOTHYROXINE SODIUM [Concomitant]
     Active Substance: LEVOTHYROXINE SODIUM
  16. BREZTRI [Concomitant]
     Active Substance: BUDESONIDE\FORMOTEROL\GLYCOPYRROLATE
  17. VITAMIN B12 [Concomitant]
     Active Substance: CYANOCOBALAMIN
  18. ASPIRIN [Concomitant]
     Active Substance: ASPIRIN
  19. ALLOPURINOL [Concomitant]
     Active Substance: ALLOPURINOL
  20. ALBUTEROL SULFATE [Concomitant]
     Active Substance: ALBUTEROL SULFATE
  21. ALBUTEROL SULFATE [Concomitant]
     Active Substance: ALBUTEROL SULFATE
  22. LATANOPROST [Concomitant]
     Active Substance: LATANOPROST
  23. JARDIANCE [Concomitant]
     Active Substance: EMPAGLIFLOZIN
  24. FUROSEMIDE [Concomitant]
     Active Substance: FUROSEMIDE
  25. ELIQUIS [Concomitant]
     Active Substance: APIXABAN
  26. CALCIUM [Concomitant]
     Active Substance: CALCIUM

REACTIONS (1)
  - Headache [Unknown]
